FAERS Safety Report 18847689 (Version 2)
Quarter: 2021Q1

REPORT INFORMATION
  Report Type: Spontaneous
  Country: CN (occurrence: CN)
  Receive Date: 20210204
  Receipt Date: 20210329
  Transmission Date: 20210419
  Serious: Yes (Hospitalization, Other)
  Sender: FDA-Public Use
  Company Number: CN-JNJFOC-20210200896

PATIENT
  Age: 64 Year
  Sex: Male
  Weight: 68 kg

DRUGS (2)
  1. RIVAROXABAN [Suspect]
     Active Substance: RIVAROXABAN
     Indication: ANTICOAGULANT THERAPY
     Dosage: 10 MG, QD
     Route: 048
     Dates: start: 20201127, end: 20210111
  2. CLOPIDOGREL HYDROGEN SULFATE [Suspect]
     Active Substance: CLOPIDOGREL BISULFATE
     Indication: ANTICOAGULANT THERAPY
     Dosage: 75 MG, QD
     Route: 048
     Dates: start: 20201127, end: 20210111

REACTIONS (10)
  - Upper gastrointestinal haemorrhage [Recovering/Resolving]
  - Dizziness [Recovering/Resolving]
  - Asthenia [Recovering/Resolving]
  - Blood loss anaemia [Recovering/Resolving]
  - Product prescribing issue [Unknown]
  - Melaena [Recovering/Resolving]
  - Chest discomfort [Unknown]
  - Tachypnoea [Unknown]
  - Contraindicated product administered [Unknown]
  - Product monitoring error [Unknown]

NARRATIVE: CASE EVENT DATE: 20201127
